FAERS Safety Report 13678806 (Version 2)
Quarter: 2017Q3

REPORT INFORMATION
  Report Type: Report from Study
  Country: US (occurrence: US)
  Receive Date: 20170622
  Receipt Date: 20170821
  Transmission Date: 20171127
  Serious: Yes (Death, Hospitalization, Other)
  Sender: FDA-Public Use
  Company Number: US-JNJFOC-20170508531

PATIENT
  Sex: Female

DRUGS (12)
  1. IMBRUVICA [Suspect]
     Active Substance: IBRUTINIB
     Indication: NON-HODGKIN^S LYMPHOMA
     Route: 048
     Dates: start: 20170425
  2. ASPIRIN. [Concomitant]
     Active Substance: ASPIRIN
  3. METOPROLOL SUCCINATE. [Concomitant]
     Active Substance: METOPROLOL SUCCINATE
  4. ONDANSETRON HCL [Concomitant]
     Active Substance: ONDANSETRON HYDROCHLORIDE
  5. ELIQUIS [Concomitant]
     Active Substance: APIXABAN
  6. DIGOXIN. [Concomitant]
     Active Substance: DIGOXIN
  7. ROSUVASTATIN. [Concomitant]
     Active Substance: ROSUVASTATIN
  8. LORAZEPAM. [Concomitant]
     Active Substance: LORAZEPAM
  9. CALCIUM [Concomitant]
     Active Substance: CALCIUM
  10. IMBRUVICA [Suspect]
     Active Substance: IBRUTINIB
     Indication: NON-HODGKIN^S LYMPHOMA
     Route: 048
  11. MAGNESIUM [Concomitant]
     Active Substance: MAGNESIUM
  12. GLUCOPHAGE [Concomitant]
     Active Substance: METFORMIN HYDROCHLORIDE

REACTIONS (8)
  - Pleural effusion [Unknown]
  - Product physical issue [Unknown]
  - Disease progression [Fatal]
  - Pneumothorax [Unknown]
  - Dyspnoea [Not Recovered/Not Resolved]
  - Obstructive airways disorder [Unknown]
  - Cough [Not Recovered/Not Resolved]
  - Asthenia [Not Recovered/Not Resolved]
